FAERS Safety Report 25929795 (Version 1)
Quarter: 2025Q4

REPORT INFORMATION
  Report Type: Spontaneous
  Country: EU (occurrence: EU)
  Receive Date: 20251016
  Receipt Date: 20251016
  Transmission Date: 20260118
  Serious: Yes (Hospitalization)
  Sender: TEVA
  Company Number: None

PATIENT
  Age: 56 Year
  Sex: Female

DRUGS (6)
  1. PACLITAXEL [Suspect]
     Active Substance: PACLITAXEL
     Indication: Neoplasm malignant
     Dosage: TIME INTERVAL: TOTAL: DOSE NOT STATED, BUT 1.84 ML WAS ADMINISTERED WHEN THE REACTION STARTED. TH...
     Route: 065
     Dates: start: 20250725, end: 20250725
  2. DEXAMETHASONE [Concomitant]
     Active Substance: DEXAMETHASONE
     Indication: Premedication
     Dosage: TIME INTERVAL: TOTAL
     Route: 065
     Dates: start: 20250725, end: 20250725
  3. FAMOTIDINE [Concomitant]
     Active Substance: FAMOTIDINE
     Indication: Premedication
     Dosage: TIME INTERVAL: TOTAL
     Route: 065
     Dates: start: 20250725, end: 20250725
  4. Akynzeo [Concomitant]
     Indication: Premedication
     Dosage: TIME INTERVAL: TOTAL
     Route: 065
  5. CETIRIZINE [Concomitant]
     Active Substance: CETIRIZINE HYDROCHLORIDE
     Indication: Premedication
     Dosage: TIME INTERVAL: TOTAL
     Route: 065
     Dates: start: 20250725, end: 20250725
  6. Folat [Concomitant]
     Indication: Product used for unknown indication
     Route: 065

REACTIONS (1)
  - Infusion related reaction [Unknown]

NARRATIVE: CASE EVENT DATE: 20250725
